FAERS Safety Report 8372910-4 (Version None)
Quarter: 2012Q2

REPORT INFORMATION
  Report Type: 
  Country: None (occurrence: None)
  Receive Date: 20120521
  Receipt Date: 20120510
  Transmission Date: 20120825
  Serious: Yes (Hospitalization)
  Sender: FDA-Public Use
  Company Number: US-ASTRAZENECA-2012SE22645

PATIENT
  Age: 67 Year
  Sex: Female

DRUGS (6)
  1. VISTARIL [Concomitant]
     Route: 048
  2. SEROQUEL [Suspect]
     Route: 048
     Dates: start: 20120426
  3. BENZTROPINE MESYLATE [Concomitant]
     Route: 048
  4. TRAMADOL HYDROCHLORIDE [Concomitant]
     Route: 048
  5. SEROQUEL [Suspect]
     Indication: DEPRESSION
     Route: 048
  6. HALOPERIDOL [Concomitant]
     Route: 048

REACTIONS (6)
  - MEMORY IMPAIRMENT [None]
  - ADVERSE EVENT [None]
  - DIZZINESS [None]
  - TREMOR [None]
  - WEIGHT DECREASED [None]
  - DIARRHOEA [None]
